FAERS Safety Report 16839161 (Version 2)
Quarter: 2020Q3

REPORT INFORMATION
  Report Type: Spontaneous
  Country: US (occurrence: US)
  Receive Date: 20190923
  Receipt Date: 20200928
  Transmission Date: 20201102
  Serious: No
  Sender: FDA-Public Use
  Company Number: US-PFIZER INC-2019404798

PATIENT
  Age: 46 Year
  Sex: Male

DRUGS (1)
  1. EUCRISA [Suspect]
     Active Substance: CRISABOROLE
     Indication: DERMATITIS ATOPIC
     Dosage: UNK, 2X/DAY (APPLY TO AFFECTED AREA(S) TWICE A DAY)

REACTIONS (3)
  - Drug ineffective [Unknown]
  - Poor quality product administered [Unknown]
  - Product physical consistency issue [Unknown]
